FAERS Safety Report 24245959 (Version 2)
Quarter: 2024Q3

REPORT INFORMATION
  Report Type: Spontaneous
  Country: US (occurrence: US)
  Receive Date: 20240824
  Receipt Date: 20240903
  Transmission Date: 20241017
  Serious: Yes (Other)
  Sender: ABBVIE
  Company Number: US-ABBVIE-5885512

PATIENT
  Sex: Male
  Weight: 53.523 kg

DRUGS (1)
  1. SYNTHROID [Suspect]
     Active Substance: LEVOTHYROXINE SODIUM
     Indication: Hypothyroidism
     Route: 048
     Dates: start: 1992

REACTIONS (7)
  - Blindness [Not Recovered/Not Resolved]
  - Migraine [Not Recovered/Not Resolved]
  - Product storage error [Unknown]
  - Poor quality product administered [Not Recovered/Not Resolved]
  - Urticaria [Recovered/Resolved]
  - Rheumatoid arthritis [Not Recovered/Not Resolved]
  - Colitis ulcerative [Not Recovered/Not Resolved]

NARRATIVE: CASE EVENT DATE: 19940101
